FAERS Safety Report 9696332 (Version 2)
Quarter: 2013Q4

REPORT INFORMATION
  Report Type: Spontaneous
  Country: US (occurrence: US)
  Receive Date: 20131119
  Receipt Date: 20131206
  Transmission Date: 20140711
  Serious: Yes (Death, Life-Threatening, Hospitalization)
  Sender: FDA-Public Use
  Company Number: US-LUNDBECK-DKLU1095419

PATIENT
  Age: 2 Year
  Sex: Male

DRUGS (3)
  1. SABRIL (FOR ORAL SOLUTION) [Suspect]
     Indication: INFANTILE SPASMS
     Route: 048
     Dates: start: 20120828
  2. SABRIL (FOR ORAL SOLUTION) [Suspect]
     Route: 048
     Dates: start: 20120828
  3. TOPAMAX [Concomitant]
     Indication: PRODUCT USED FOR UNKNOWN INDICATION

REACTIONS (2)
  - Death [Fatal]
  - Life support [Unknown]
